FAERS Safety Report 6863137-3 (Version None)
Quarter: 2010Q3

REPORT INFORMATION
  Report Type: 
  Country: None (occurrence: None)
  Receive Date: 20100721
  Receipt Date: 20100708
  Transmission Date: 20110219
  Serious: Yes (Hospitalization)
  Sender: FDA-Public Use
  Company Number: JP-GENENTECH-304258

PATIENT
  Sex: Male
  Weight: 47 kg

DRUGS (14)
  1. XOLAIR [Suspect]
     Indication: ASTHMA
     Dosage: 300 MG, 1/MONTH
     Route: 058
     Dates: start: 20091029
  2. XOLAIR [Suspect]
     Dosage: UNK
     Route: 058
     Dates: start: 20091126
  3. XOLAIR [Suspect]
     Dosage: UNK
     Route: 058
     Dates: start: 20091225
  4. XOLAIR [Suspect]
     Dosage: UNK
     Route: 058
     Dates: start: 20100203
  5. ADVAIR DISKUS 100/50 [Concomitant]
     Indication: PRODUCT USED FOR UNKNOWN INDICATION
  6. SINGULAIR [Concomitant]
     Indication: PRODUCT USED FOR UNKNOWN INDICATION
  7. ALESION [Concomitant]
     Indication: PRODUCT USED FOR UNKNOWN INDICATION
  8. THEO-DUR [Concomitant]
     Indication: PRODUCT USED FOR UNKNOWN INDICATION
  9. PREDONINE [Concomitant]
     Indication: PRODUCT USED FOR UNKNOWN INDICATION
  10. EURODIN [Concomitant]
     Indication: PRODUCT USED FOR UNKNOWN INDICATION
  11. URINORM [Concomitant]
     Indication: PRODUCT USED FOR UNKNOWN INDICATION
  12. SILECE [Concomitant]
     Indication: PRODUCT USED FOR UNKNOWN INDICATION
  13. RISEDRONATE SODIUM [Concomitant]
     Indication: PRODUCT USED FOR UNKNOWN INDICATION
  14. ZANTAC [Concomitant]
     Indication: PRODUCT USED FOR UNKNOWN INDICATION

REACTIONS (1)
  - ASTHMA [None]
